FAERS Safety Report 9096096 (Version 1)
Quarter: 2013Q1

REPORT INFORMATION
  Report Type: Report from Study
  Country: GB (occurrence: GB)
  Receive Date: 20130207
  Receipt Date: 20130207
  Transmission Date: 20140127
  Serious: Yes (Hospitalization)
  Sender: FDA-Public Use
  Company Number: GB-ROCHE-1187434

PATIENT
  Age: 47 Year
  Sex: Female
  Weight: 71 kg

DRUGS (8)
  1. RITUXIMAB [Suspect]
     Indication: RHEUMATOID ARTHRITIS
     Dosage: LAST DOSE PRIOR TO SAE:09/AUG/2011
     Route: 065
     Dates: start: 20110726
  2. METHOTREXATE [Concomitant]
     Route: 065
     Dates: start: 20060315, end: 20111031
  3. LEVOTHYROXINE [Concomitant]
     Route: 048
  4. PARACETAMOL [Concomitant]
     Indication: PAIN
     Route: 048
  5. PARACETAMOL [Concomitant]
     Dosage: MAXIMUM 4G
     Route: 048
  6. OMEPRAZOLE [Concomitant]
     Route: 048
  7. SEVREDOL [Concomitant]
     Indication: PAIN
     Route: 048
  8. TRAMADOL [Concomitant]
     Indication: PAIN
     Route: 048

REACTIONS (1)
  - Breast cancer [Recovered/Resolved]
